FAERS Safety Report 9201519 (Version 1)
Quarter: 2013Q2

REPORT INFORMATION
  Report Type: Spontaneous
  Country: JP (occurrence: JP)
  Receive Date: 20130401
  Receipt Date: 20130401
  Transmission Date: 20140414
  Serious: Yes (Hospitalization, Other)
  Sender: FDA-Public Use
  Company Number: JP-PFIZER INC-2013097039

PATIENT
  Age: 65 Year
  Sex: Female

DRUGS (4)
  1. CRIZOTINIB [Suspect]
     Dosage: 250 MG, 2X/DAY
     Route: 048
     Dates: start: 201210, end: 201211
  2. CRIZOTINIB [Suspect]
     Dosage: UNK
     Dates: start: 201212, end: 201212
  3. CRIZOTINIB [Suspect]
     Dosage: UNK
     Dates: start: 201301
  4. CRIZOTINIB [Suspect]
     Dosage: UNK
     Dates: start: 20130323

REACTIONS (8)
  - Pleural effusion [Recovering/Resolving]
  - Pneumonia [Recovered/Resolved]
  - Pneumonia [Unknown]
  - Pleural effusion [Recovered/Resolved]
  - Nasopharyngitis [Recovered/Resolved]
  - Nasopharyngitis [Unknown]
  - Dysgeusia [Unknown]
  - Malaise [Unknown]
